FAERS Safety Report 5188212-3 (Version None)
Quarter: 2006Q4

REPORT INFORMATION
  Report Type: 
  Country: None (occurrence: None)
  Receive Date: 20061221
  Receipt Date: 20061211
  Transmission Date: 20070319
  Serious: Yes (Death, Hospitalization)
  Sender: FDA-Public Use
  Company Number: US-ABBOTT-06P-163-0353245-00

PATIENT
  Sex: Female

DRUGS (20)
  1. VICODIN [Suspect]
     Indication: PAIN
  2. DEPAKOTE [Suspect]
     Indication: DRUG USE FOR UNKNOWN INDICATION
  3. CLONAZEPAM [Suspect]
     Indication: PAIN
  4. EPHEDRA [Interacting]
     Indication: DRUG INTERACTION POTENTIATION
     Dates: start: 20030211
  5. ROFECOXIB [Suspect]
     Indication: ARTHRALGIA
  6. ROFECOXIB [Suspect]
     Indication: SCOLIOSIS
  7. SERTRALINE HYDROCHLORIDE [Suspect]
     Indication: DRUG USE FOR UNKNOWN INDICATION
  8. PAROXETINE HYDROCHLORIDE [Suspect]
     Indication: DRUG USE FOR UNKNOWN INDICATION
  9. VENLAFAXINE HYDROCHLORIDE [Suspect]
     Indication: DRUG USE FOR UNKNOWN INDICATION
  10. OLANZAPINE [Suspect]
     Indication: DRUG USE FOR UNKNOWN INDICATION
  11. PROPACET 100 [Suspect]
     Indication: DRUG USE FOR UNKNOWN INDICATION
  12. QUETIAPINE FUMARATE [Suspect]
     Indication: DRUG USE FOR UNKNOWN INDICATION
  13. LAMOTRIGINE [Suspect]
     Indication: DRUG USE FOR UNKNOWN INDICATION
  14. AMOXICILLIN TRIHYDRATE [Suspect]
     Indication: DRUG USE FOR UNKNOWN INDICATION
  15. PAIN DRUGS [Suspect]
     Indication: DRUG USE FOR UNKNOWN INDICATION
  16. ANTICONVULSANTS [Suspect]
     Indication: DRUG USE FOR UNKNOWN INDICATION
  17. ANTISEIZURES [Suspect]
     Indication: DRUG USE FOR UNKNOWN INDICATION
  18. SSRI^S [Suspect]
     Indication: DRUG USE FOR UNKNOWN INDICATION
  19. BUCINDOLOL HYDROCHLORIDE [Concomitant]
     Indication: ARTHRALGIA
  20. BUCINDOLOL HYDROCHLORIDE [Concomitant]
     Indication: SCOLIOSIS

REACTIONS (22)
  - ACTIVITIES OF DAILY LIVING IMPAIRED [None]
  - ACUTE PSYCHOSIS [None]
  - ADVERSE DRUG REACTION [None]
  - AGGRESSION [None]
  - ANXIETY [None]
  - BIPOLAR DISORDER [None]
  - CARDIAC DISORDER [None]
  - COMPLETED SUICIDE [None]
  - CRYING [None]
  - DRUG DEPENDENCE [None]
  - DRUG TOXICITY [None]
  - FATIGUE [None]
  - HYPERSENSITIVITY [None]
  - MANIA [None]
  - MENTAL DISORDER [None]
  - PAIN [None]
  - PERSONALITY DISORDER [None]
  - PSYCHOTIC DISORDER [None]
  - RESTLESSNESS [None]
  - SCHIZOPHRENIA [None]
  - SOMNOLENCE [None]
  - TREATMENT NONCOMPLIANCE [None]
